FAERS Safety Report 10156171 (Version 1)
Quarter: 2014Q2

REPORT INFORMATION
  Report Type: Spontaneous
  Country: BR (occurrence: BR)
  Receive Date: 20140506
  Receipt Date: 20140506
  Transmission Date: 20141212
  Serious: Yes (Death, Other)
  Sender: FDA-Public Use
  Company Number: PHHY2014BR054359

PATIENT
  Sex: Male

DRUGS (3)
  1. CARBAMAZEPINE [Suspect]
     Dosage: 200 MG, BID: MATERNAL DOSE
     Route: 064
  2. METHYLDOPA [Suspect]
     Route: 064
  3. NITROFURANTOIN [Suspect]
     Route: 064

REACTIONS (17)
  - Stillbirth [Fatal]
  - Foetal heart rate abnormal [Unknown]
  - Brain herniation [Unknown]
  - Low birth weight baby [Unknown]
  - Encephalocele [Unknown]
  - Clinodactyly [Unknown]
  - Aplasia [Unknown]
  - Adactyly [Unknown]
  - Microcephaly [Unknown]
  - Microtia [Unknown]
  - External auditory canal atresia [Unknown]
  - Pulmonary hypoplasia [Unknown]
  - Congenital adrenal gland hypoplasia [Unknown]
  - Renal atrophy [Unknown]
  - Single umbilical artery [Unknown]
  - Limb deformity [Unknown]
  - Foetal exposure during pregnancy [Unknown]
